FAERS Safety Report 10365953 (Version 2)
Quarter: 2014Q3

REPORT INFORMATION
  Report Type: Report from Study
  Country: BD (occurrence: BD)
  Receive Date: 20140806
  Receipt Date: 20140806
  Transmission Date: 20150326
  Serious: Yes (Death)
  Sender: FDA-Public Use
  Company Number: PHHY2013BD090466

PATIENT
  Age: 70 Year
  Sex: Male

DRUGS (2)
  1. NAMENDA [Concomitant]
     Active Substance: MEMANTINE HYDROCHLORIDE
     Indication: DEMENTIA
     Dosage: UNK UKN, UNK
     Route: 048
     Dates: start: 201009
  2. EXELON PATCH [Suspect]
     Active Substance: RIVASTIGMINE
     Indication: DEMENTIA
     Dosage: 4.6 MG, DAILY
     Route: 062
     Dates: start: 200909, end: 201008

REACTIONS (2)
  - Dyspnoea [Fatal]
  - Death [Fatal]

NARRATIVE: CASE EVENT DATE: 20130722
